FAERS Safety Report 6585949-6 (Version None)
Quarter: 2010Q1

REPORT INFORMATION
  Report Type: 
  Country: None (occurrence: None)
  Receive Date: 20100217
  Receipt Date: 20100202
  Transmission Date: 20100710
  Serious: Yes (Hospitalization)
  Sender: FDA-Public Use
  Company Number: US-SANOFI-AVENTIS-2009SA010495

PATIENT
  Age: 59 Year
  Sex: Female
  Weight: 118 kg

DRUGS (37)
  1. OXALIPLATIN [Suspect]
     Indication: NEOPLASM MALIGNANT
     Dosage: 155 MG, 1 IN 2 WEEKS
     Route: 042
     Dates: start: 20090722, end: 20090722
  2. OXALIPLATIN [Suspect]
     Dosage: 155 MG, 1 IN 2 WEEKS
     Route: 042
     Dates: start: 20090722, end: 20090722
  3. OXALIPLATIN [Suspect]
     Dosage: 155 MG, 1 IN 2 WEEKS
     Route: 042
     Dates: start: 20090610, end: 20090610
  4. OXALIPLATIN [Suspect]
     Dosage: 155 MG, 1 IN 2 WEEKS
     Route: 042
     Dates: start: 20090610, end: 20090610
  5. OXALIPLATIN [Suspect]
     Route: 042
     Dates: start: 20091104, end: 20091104
  6. OXALIPLATIN [Suspect]
     Route: 042
     Dates: start: 20091104, end: 20091104
  7. INVESTIGATIONAL DRUG [Suspect]
     Indication: NEOPLASM MALIGNANT
     Dosage: BLINDED, 1 IN 2 WEEKS
     Route: 042
     Dates: start: 20090722, end: 20090722
  8. INVESTIGATIONAL DRUG [Suspect]
     Dosage: BLINDED, 1 IN 2 WEEKS
     Route: 042
     Dates: start: 20090722, end: 20090722
  9. INVESTIGATIONAL DRUG [Suspect]
     Dosage: BLINDED, 1 IN 2 WEEKS
     Route: 042
     Dates: start: 20090610, end: 20090610
  10. INVESTIGATIONAL DRUG [Suspect]
     Dosage: BLINDED, 1 IN 2 WEEKS
     Route: 042
     Dates: start: 20090610, end: 20090610
  11. INVESTIGATIONAL DRUG [Suspect]
     Route: 042
     Dates: start: 20091104, end: 20091104
  12. INVESTIGATIONAL DRUG [Suspect]
     Route: 042
     Dates: start: 20091104, end: 20091104
  13. FOLINIC ACID [Suspect]
     Indication: NEOPLASM MALIGNANT
     Dosage: 735 MG, 1 IN 2 WEEKS
     Route: 042
     Dates: start: 20090722, end: 20090722
  14. FOLINIC ACID [Suspect]
     Dosage: 735 MG, 1 IN 2 WEEKS
     Route: 042
     Dates: start: 20090722, end: 20090722
  15. FOLINIC ACID [Suspect]
     Route: 042
     Dates: start: 20091104, end: 20091104
  16. FOLINIC ACID [Suspect]
     Route: 042
     Dates: start: 20091104, end: 20091104
  17. FOLINIC ACID [Suspect]
     Dosage: 735 MG, 1 IN 2 WEEKS
     Route: 042
     Dates: start: 20090610, end: 20090610
  18. FOLINIC ACID [Suspect]
     Dosage: 735 MG, 1 IN 2 WEEKS
     Route: 042
     Dates: start: 20090610, end: 20090610
  19. FLUOROURACIL [Suspect]
     Indication: NEOPLASM MALIGNANT
     Route: 042
     Dates: start: 20091104, end: 20091104
  20. FLUOROURACIL [Suspect]
     Route: 042
     Dates: start: 20091104, end: 20091104
  21. FLUOROURACIL [Suspect]
     Dosage: 735 MG, 1 IN 2 WEEKS
     Route: 042
     Dates: start: 20090610, end: 20090610
  22. FLUOROURACIL [Suspect]
     Dosage: 735 MG, 1 IN 2 WEEKS
     Route: 042
     Dates: start: 20090610, end: 20090610
  23. FLUOROURACIL [Suspect]
     Dosage: 4400 MG, 1 IN 2 WEEKS
     Route: 042
     Dates: start: 20090722, end: 20090722
  24. FLUOROURACIL [Suspect]
     Dosage: 4400 MG, 1 IN 2 WEEKS
     Route: 042
     Dates: start: 20090722, end: 20090722
  25. BEVACIZUMAB [Suspect]
     Indication: NEOPLASM MALIGNANT
     Dosage: 360 MG, 1 IN 2 WEEKS
     Route: 042
     Dates: start: 20090722, end: 20090722
  26. BEVACIZUMAB [Suspect]
     Dosage: 360 MG, 1 IN 2 WEEKS
     Route: 042
     Dates: start: 20090722, end: 20090722
  27. BEVACIZUMAB [Suspect]
     Dosage: 360 MG, 1 IN 2 WEEKS
     Route: 042
     Dates: start: 20090610, end: 20090610
  28. BEVACIZUMAB [Suspect]
     Dosage: 360 MG, 1 IN 2 WEEKS
     Route: 042
     Dates: start: 20090610, end: 20090610
  29. ACETAMINOPHEN AND HYDROCODONE BITARTRATE [Concomitant]
     Dosage: 1 G, 4 IN 1 DAY
     Route: 048
  30. ACETAMINOPHEN [Concomitant]
     Dosage: 4 MG, 1 IN 1 DAY
     Route: 048
  31. ESCITALOPRAM [Concomitant]
     Dosage: 100 MG, 1 IN 1 DAY
     Route: 048
  32. FUROSEMIDE [Concomitant]
     Dosage: 2 MG, 1 IN 1 DAY
     Route: 048
  33. GLIMEPIRIDE [Concomitant]
     Dosage: 20 MG, 1 IN 1 DAY
     Route: 048
  34. METOPROLOL TARTRATE [Concomitant]
     Dosage: 20 MG, 1 IN 1 DAY
     Route: 048
  35. INSULIN DETEMIR [Concomitant]
     Dosage: 40 MG, 2 IN 1 DAY
     Route: 058
  36. INSULIN LISPRO [Concomitant]
     Dosage: 10 MG, 1 IN 1 DAY
     Route: 058
  37. HYDROCHLOROTHIAZIDE [Concomitant]
     Dosage: 40 MG, 2 IN 1 DAY
     Route: 048

REACTIONS (3)
  - ABDOMINAL PAIN [None]
  - DISEASE PROGRESSION [None]
  - WOUND DEHISCENCE [None]
